FAERS Safety Report 18602178 (Version 2)
Quarter: 2020Q4

REPORT INFORMATION
  Report Type: Spontaneous
  Country: US (occurrence: US)
  Receive Date: 20201210
  Receipt Date: 20201214
  Transmission Date: 20210114
  Serious: No
  Sender: FDA-Public Use
  Company Number: US-PFIZER INC-2020487081

PATIENT
  Age: 63 Year
  Sex: Female

DRUGS (1)
  1. XELJANZ XR [Suspect]
     Active Substance: TOFACITINIB CITRATE
     Dosage: 11 MG
     Dates: start: 20201004, end: 20201007

REACTIONS (3)
  - Feeling abnormal [Unknown]
  - Disturbance in attention [Unknown]
  - Dizziness [Unknown]

NARRATIVE: CASE EVENT DATE: 202010
